FAERS Safety Report 7470583-6 (Version None)
Quarter: 2011Q2

REPORT INFORMATION
  Report Type: 
  Country: None (occurrence: None)
  Receive Date: 20110429
  Receipt Date: 20110415
  Transmission Date: 20111010
  Serious: Yes (Hospitalization, Other)
  Sender: FDA-Public Use
  Company Number: 009753

PATIENT
  Sex: Female

DRUGS (12)
  1. CIMZIA [Suspect]
     Indication: RHEUMATOID ARTHRITIS
     Dosage: 200 MG 1/2WEEKS, 275-08-003, SUBCUTANEOUS
     Route: 058
     Dates: end: 20110401
  2. CIMZIA [Suspect]
     Indication: RHEUMATOID ARTHRITIS
     Dosage: 200 MG 1/2WEEKS, 275-08-003, SUBCUTANEOUS
     Route: 058
     Dates: start: 20091211
  3. CIMZIA [Suspect]
     Indication: RHEUMATOID ARTHRITIS
     Dosage: 200 MG 1/2WEEKS, 275-08-003, SUBCUTANEOUS
     Route: 058
     Dates: start: 20090820, end: 20090101
  4. DICLOFENAC SODIUM [Concomitant]
  5. BETAMETHASONE [Concomitant]
  6. REBAMIPIDE [Concomitant]
  7. ATORVASTATIN CALCIUM [Concomitant]
  8. MIZORIBINE [Concomitant]
  9. LANSOPRAZOLE [Concomitant]
  10. PREGABALIN [Concomitant]
  11. INDOMETHACIN SODIUM [Concomitant]
  12. KETOPROFEN [Concomitant]

REACTIONS (11)
  - PAIN [None]
  - BONE PAIN [None]
  - INTERSTITIAL LUNG DISEASE [None]
  - OPPORTUNISTIC INFECTION [None]
  - INTERVERTEBRAL DISC PROTRUSION [None]
  - COUGH [None]
  - LUMBAR SPINAL STENOSIS [None]
  - MUSCULOSKELETAL PAIN [None]
  - ARTHRALGIA [None]
  - FUNGAL INFECTION [None]
  - HYPOAESTHESIA [None]
